FAERS Safety Report 16265669 (Version 1)
Quarter: 2019Q2

REPORT INFORMATION
  Report Type: Spontaneous
  Country: FR (occurrence: FR)
  Receive Date: 20190502
  Receipt Date: 20190502
  Transmission Date: 20190711
  Serious: Yes (Death)
  Sender: FDA-Public Use
  Company Number: FR-TEVA-2019-FR-1045339

PATIENT
  Age: 90 Year
  Sex: Male
  Weight: 65 kg

DRUGS (9)
  1. FUNGIZONE [Suspect]
     Active Substance: AMPHOTERICIN B
     Indication: ORAL DISORDER
     Route: 002
     Dates: start: 20190318
  2. LAMOTRIGINE. [Suspect]
     Active Substance: LAMOTRIGINE
     Indication: EPILEPSY
     Route: 048
     Dates: start: 201902, end: 20190320
  3. VITABACT [Suspect]
     Active Substance: PICLOXYDINE DIHYDROCHLORIDE
     Indication: EYE INFECTION
     Route: 047
     Dates: start: 20190316
  4. LACTULOSE. [Suspect]
     Active Substance: LACTULOSE
     Indication: CONSTIPATION
     Route: 048
     Dates: start: 201902, end: 20190320
  5. OXYCODONE [Suspect]
     Active Substance: OXYCODONE
     Indication: PAIN
     Route: 048
     Dates: start: 201902, end: 20190320
  6. CEFOTAXIME SODIQUE [Suspect]
     Active Substance: CEFOTAXIME SODIUM
     Indication: LUNG DISORDER
     Route: 042
     Dates: start: 20190318, end: 20190319
  7. CLAMOXYL (AMOXICILLIN) [Suspect]
     Active Substance: AMOXICILLIN
     Indication: LUNG DISORDER
     Route: 048
     Dates: start: 20190316, end: 20190318
  8. TOUJEO [Suspect]
     Active Substance: INSULIN GLARGINE
     Indication: DIABETES MELLITUS
     Route: 058
  9. DOLIPRANE [Suspect]
     Active Substance: ACETAMINOPHEN
     Indication: PAIN
     Route: 048
     Dates: start: 20190316, end: 20190318

REACTIONS (2)
  - Skin exfoliation [Fatal]
  - Generalised erythema [Fatal]

NARRATIVE: CASE EVENT DATE: 20190318
